FAERS Safety Report 9661650 (Version 2)
Quarter: 2013Q4

REPORT INFORMATION
  Report Type: Spontaneous
  Country: US (occurrence: US)
  Receive Date: 20131031
  Receipt Date: 20131031
  Transmission Date: 20140711
  Serious: No
  Sender: FDA-Public Use
  Company Number: US-PURDUE-USA-2010-0054434

PATIENT
  Age: 37 Year
  Sex: Male

DRUGS (1)
  1. OXYCONTIN (NDA 22-272) [Suspect]
     Indication: INTERVERTEBRAL DISC PROTRUSION
     Dosage: 80 MG, BID

REACTIONS (10)
  - Drug withdrawal syndrome [Not Recovered/Not Resolved]
  - Drug effect increased [Recovered/Resolved]
  - Balance disorder [Recovered/Resolved]
  - Body temperature increased [Recovered/Resolved]
  - Drug effect decreased [Recovered/Resolved]
  - Nausea [Not Recovered/Not Resolved]
  - Intentional drug misuse [Not Recovered/Not Resolved]
  - Vomiting [Recovered/Resolved]
  - Chills [Recovered/Resolved]
  - Dizziness [Not Recovered/Not Resolved]
